FAERS Safety Report 8462011-9 (Version None)
Quarter: 2012Q2

REPORT INFORMATION
  Report Type: 
  Country: None (occurrence: None)
  Receive Date: 20120625
  Receipt Date: 20120615
  Transmission Date: 20120825
  Serious: Yes (Other)
  Sender: FDA-Public Use
  Company Number: CA-JNJFOC-20120608031

PATIENT
  Sex: Female
  Weight: 72 kg

DRUGS (4)
  1. REMICADE [Suspect]
     Dosage: 35TH INFUSION
     Route: 042
     Dates: start: 20120615
  2. REMICADE [Suspect]
     Indication: ANKYLOSING SPONDYLITIS
     Dosage: 34TH INFUSION
     Route: 042
     Dates: start: 20120504
  3. METHOTREXATE [Concomitant]
     Route: 065
  4. METHOTREXATE [Concomitant]
     Route: 065

REACTIONS (7)
  - ARTHRITIS [None]
  - FOOT DEFORMITY [None]
  - ANKYLOSING SPONDYLITIS [None]
  - OEDEMA [None]
  - NAIL BED DISORDER [None]
  - FALL [None]
  - ONYCHOCLASIS [None]
